FAERS Safety Report 25024542 (Version 1)
Quarter: 2025Q1

REPORT INFORMATION
  Report Type: Spontaneous
  Country: IN (occurrence: IN)
  Receive Date: 20250228
  Receipt Date: 20250228
  Transmission Date: 20250408
  Serious: Yes (Other)
  Sender: DR REDDYS
  Company Number: IN-RDY-IND/2025/02/003109

PATIENT
  Age: 21 Year
  Sex: Male

DRUGS (4)
  1. GEMCITABINE [Suspect]
     Active Substance: GEMCITABINE
     Indication: Yolk sac tumour site unspecified
  2. GEMCITABINE [Suspect]
     Active Substance: GEMCITABINE
     Indication: Metastases to lung
  3. TAXOL [Suspect]
     Active Substance: PACLITAXEL
     Indication: Yolk sac tumour site unspecified
  4. TAXOL [Suspect]
     Active Substance: PACLITAXEL
     Indication: Metastases to lung

REACTIONS (2)
  - Malignant neoplasm progression [Unknown]
  - Product use in unapproved indication [Unknown]
